FAERS Safety Report 7524940-X (Version None)
Quarter: 2011Q2

REPORT INFORMATION
  Report Type: 
  Country: None (occurrence: None)
  Receive Date: 20110606
  Receipt Date: 20110523
  Transmission Date: 20111010
  Serious: Yes (Hospitalization)
  Sender: FDA-Public Use
  Company Number: NO-ELI_LILLY_AND_COMPANY-NO201105007767

PATIENT
  Age: 24 Year
  Sex: Female

DRUGS (3)
  1. FLUOXETINE HCL [Suspect]
     Dosage: 20 MG, QD
  2. LAMICTAL [Concomitant]
     Dosage: 50 MG, QD
  3. VALPROIC ACID [Concomitant]
     Dosage: 300 MG, BID

REACTIONS (1)
  - PNEUMONIA MYCOPLASMAL [None]
